FAERS Safety Report 13172487 (Version 2)
Quarter: 2017Q1

REPORT INFORMATION
  Report Type: Report from Study
  Country: US (occurrence: DE)
  Receive Date: 20170201
  Receipt Date: 20170217
  Transmission Date: 20170428
  Serious: Yes (Death)
  Sender: FDA-Public Use
  Company Number: US-SUNOVION-2017SUN000365

PATIENT

DRUGS (8)
  1. AMBROXOL AL [Concomitant]
     Dosage: UNK
  2. GLYCOPYRROLATE. [Suspect]
     Active Substance: GLYCOPYRROLATE
     Indication: CHRONIC OBSTRUCTIVE PULMONARY DISEASE
     Dosage: 44 ?G, QD
     Route: 055
  3. SPIRIVA [Concomitant]
     Active Substance: TIOTROPIUM BROMIDE MONOHYDRATE
     Dosage: UNK
  4. MIRTAZAPIN BIOMO [Concomitant]
     Dosage: UNK
  5. MTX HEXAL [Concomitant]
     Active Substance: METHOTREXATE SODIUM
     Dosage: UNK
  6. DERMOSOLON [Concomitant]
     Dosage: UNK
  7. FOLSON [Concomitant]
     Dosage: UNK
  8. MYLEPSINUM [Concomitant]
     Active Substance: PRIMIDONE
     Dosage: UNK

REACTIONS (2)
  - Adenocarcinoma [Fatal]
  - Pancreatic carcinoma [Fatal]

NARRATIVE: CASE EVENT DATE: 201508
